FAERS Safety Report 8883801 (Version 1)
Quarter: 2012Q4

REPORT INFORMATION
  Report Type: 
  Country: US (occurrence: US)
  Receive Date: 20121102
  Receipt Date: 20121102
  Transmission Date: 20130627
  Serious: No
  Sender: FDA-Public Use
  Company Number: US-ASTRAZENECA-2012SE07562

PATIENT
  Age: 49 Year
  Sex: Female

DRUGS (4)
  1. CRESTOR [Suspect]
     Route: 048
  2. KLONOPIN [Concomitant]
  3. CELEXA [Concomitant]
  4. OXYCONTIN [Concomitant]

REACTIONS (4)
  - Somnolence [Unknown]
  - Somnolence [Unknown]
  - Muscular weakness [Unknown]
  - Nausea [Unknown]
